FAERS Safety Report 20495246 (Version 1)
Quarter: 2022Q1

REPORT INFORMATION
  Report Type: Spontaneous
  Country: PL (occurrence: PL)
  Receive Date: 20220221
  Receipt Date: 20220221
  Transmission Date: 20220423
  Serious: Yes (Hospitalization, Disabling, Other)
  Sender: FDA-Public Use
  Company Number: PL-AstraZeneca-2021A732891

PATIENT
  Age: 68 Year
  Sex: Female

DRUGS (63)
  1. CARBOPLATIN [Suspect]
     Active Substance: CARBOPLATIN
     Indication: Endometrial cancer
     Dosage: 410 MG, SINGLE
     Route: 042
     Dates: start: 20210716, end: 20210716
  2. CARBOPLATIN [Suspect]
     Active Substance: CARBOPLATIN
     Dosage: PHARMACEUTICAL FORM: INFUSION
     Route: 042
     Dates: start: 20210806, end: 20210806
  3. CARBOPLATIN [Suspect]
     Active Substance: CARBOPLATIN
     Dosage: 410 MG, SINGLE
     Route: 042
     Dates: start: 20210827, end: 20210827
  4. CARBOPLATIN [Suspect]
     Active Substance: CARBOPLATIN
     Dosage: 328 MG, SINGLE
     Route: 042
     Dates: start: 20211018, end: 20211018
  5. DURVALUMAB [Suspect]
     Active Substance: DURVALUMAB
     Indication: Endometrial cancer
     Dosage: 1120 MG, EVERY 3 WEEKS
     Route: 042
     Dates: start: 20210716, end: 20210827
  6. DURVALUMAB [Suspect]
     Active Substance: DURVALUMAB
     Dosage: 1120 MG, SINGLE
     Route: 042
     Dates: start: 20211018, end: 20211018
  7. PACLITAXEL [Suspect]
     Active Substance: PACLITAXEL
     Indication: Endometrial cancer
     Dosage: PHARMACEUTICAL FORM: INFUSION
     Route: 042
     Dates: start: 20210716, end: 20210827
  8. PACLITAXEL [Suspect]
     Active Substance: PACLITAXEL
     Dosage: 140 MG/M2, SINGLE
     Route: 042
     Dates: start: 20211018, end: 20211018
  9. OLAPARIB [Suspect]
     Active Substance: OLAPARIB
     Indication: Endometrial cancer
     Dosage: UNK
     Route: 048
  10. ASPIRIN [Concomitant]
     Active Substance: ASPIRIN
     Indication: Intermittent claudication
     Dosage: 150 MG, 1X/DAY
     Route: 048
     Dates: start: 2013, end: 20210716
  11. ASPIRIN [Concomitant]
     Active Substance: ASPIRIN
     Dosage: 75 MG, 1X/DAY
     Route: 048
     Dates: start: 20210717
  12. DIOSMINEX [Concomitant]
     Indication: Intermittent claudication
     Dosage: 1 DF, 1X/DAY
     Route: 048
     Dates: start: 2018
  13. ASCORBIC ACID\RUTIN [Concomitant]
     Active Substance: ASCORBIC ACID\RUTIN
     Dosage: 1 DF, 1X/DAY
     Route: 048
     Dates: start: 2013, end: 20211118
  14. LOPERAMIDE [Concomitant]
     Active Substance: LOPERAMIDE
     Indication: Colitis
     Dosage: FREQ:12 H;
     Route: 048
     Dates: start: 20211123, end: 20211123
  15. LOPERAMIDE [Concomitant]
     Active Substance: LOPERAMIDE
     Indication: Diarrhoea
     Dosage: FREQ:8 H;
     Route: 048
     Dates: start: 20211022, end: 20211108
  16. LOPERAMIDE [Concomitant]
     Active Substance: LOPERAMIDE
     Dosage: FREQ:8 H;
     Route: 048
     Dates: start: 20211128
  17. LOPERAMIDE [Concomitant]
     Active Substance: LOPERAMIDE
     Dosage: 2 MG, AS NEEDED
     Route: 048
     Dates: start: 2013, end: 20211021
  18. LOPERAMIDE [Concomitant]
     Active Substance: LOPERAMIDE
     Dosage: FREQ:12 H;
     Route: 048
     Dates: start: 20211111, end: 20211111
  19. LOPERAMIDE [Concomitant]
     Active Substance: LOPERAMIDE
     Dosage: FREQ:6 H;
     Route: 048
     Dates: start: 20211118, end: 20211120
  20. LOPERAMIDE [Concomitant]
     Active Substance: LOPERAMIDE
     Dosage: FREQ:8 H;
     Route: 048
     Dates: start: 20211126, end: 20211126
  21. LOPERAMIDE [Concomitant]
     Active Substance: LOPERAMIDE
     Dosage: FREQ:6 H;
     Route: 048
     Dates: start: 20211124, end: 20211125
  22. LOPERAMIDE [Concomitant]
     Active Substance: LOPERAMIDE
     Dosage: FREQ:8 H;
     Route: 048
     Dates: start: 20211114, end: 20211115
  23. LOPERAMIDE [Concomitant]
     Active Substance: LOPERAMIDE
     Dosage: FREQ:8 H;
     Route: 048
     Dates: start: 20211116, end: 20211117
  24. LOPERAMIDE [Concomitant]
     Active Substance: LOPERAMIDE
     Dosage: FREQ:8 H;
     Route: 048
     Dates: start: 20211110, end: 20211110
  25. LOPERAMIDE [Concomitant]
     Active Substance: LOPERAMIDE
     Dosage: FREQ:12 H;
     Route: 048
     Dates: start: 20211109, end: 20211109
  26. CLEMASTINE [Concomitant]
     Active Substance: CLEMASTINE
     Indication: Premedication
     Dosage: 2 MG, EVERY 3 WEEKS
     Route: 042
     Dates: start: 20210716, end: 20211018
  27. CONTROLOC [Concomitant]
     Active Substance: PANTOPRAZOLE SODIUM
     Indication: Gastritis prophylaxis
     Dosage: 20 MG, 1X/DAY
     Route: 048
     Dates: start: 2013, end: 20211119
  28. DEXAMETHASONE [Concomitant]
     Active Substance: DEXAMETHASONE
     Indication: Premedication
     Dosage: 20 MG, EVERY 3 WEEKS
     Route: 042
     Dates: start: 20210716, end: 20211118
  29. EUTHYROX [Concomitant]
     Active Substance: LEVOTHYROXINE SODIUM
     Indication: Hypothyroidism
     Dosage: FREQ:33.6 H;
     Route: 048
     Dates: start: 2000, end: 20210924
  30. EUTHYROX [Concomitant]
     Active Substance: LEVOTHYROXINE SODIUM
     Dosage: 112 UG, WEEKLY
     Route: 048
     Dates: start: 2000, end: 20210924
  31. EUTHYROX [Concomitant]
     Active Substance: LEVOTHYROXINE SODIUM
     Dosage: 112 UG, WEEKLY
     Route: 048
     Dates: start: 20210925, end: 20211114
  32. EUTHYROX [Concomitant]
     Active Substance: LEVOTHYROXINE SODIUM
     Dosage: FREQ:28 H;
     Route: 048
     Dates: start: 20210925, end: 20211120
  33. EUTHYROX [Concomitant]
     Active Substance: LEVOTHYROXINE SODIUM
     Dosage: 100 UG, 1X/DAY
     Route: 048
     Dates: start: 20211121
  34. CILOSTAZOL [Concomitant]
     Active Substance: CILOSTAZOL
     Indication: Intermittent claudication
     Dosage: FREQ:12 H;
     Route: 048
     Dates: start: 2017, end: 20211022
  35. CILOSTAZOL [Concomitant]
     Active Substance: CILOSTAZOL
     Dosage: 100 MG, 1X/DAY
     Route: 048
     Dates: start: 20211118, end: 20211128
  36. CILOSTAZOL [Concomitant]
     Active Substance: CILOSTAZOL
     Dosage: 100 MG, 1X/DAY
     Route: 048
     Dates: start: 20211118, end: 20211128
  37. CILOSTAZOL [Concomitant]
     Active Substance: CILOSTAZOL
     Dosage: 100 %, 1X/DAY
     Route: 048
     Dates: start: 20211204
  38. CILOSTAZOL [Concomitant]
     Active Substance: CILOSTAZOL
     Dosage: 100 %, 1X/DAY
     Route: 048
     Dates: start: 20211204
  39. METAMIZOLE MAGNESIUM [Concomitant]
     Active Substance: METAMIZOLE MAGNESIUM
     Indication: Pain
     Dosage: 500 MG, AS NEEDED
     Route: 048
     Dates: start: 202105
  40. DEBUTIR [Concomitant]
     Indication: Diarrhoea
     Dosage: 1 DF, 1X/DAY
     Route: 048
     Dates: start: 2019, end: 20211022
  41. ROSUVASTATIN CALCIUM [Concomitant]
     Active Substance: ROSUVASTATIN CALCIUM
     Indication: Hypercholesterolaemia
     Dosage: 10 MG, 1X/DAY
     Route: 048
     Dates: start: 2013, end: 20210915
  42. NEBIVOLOL [Concomitant]
     Active Substance: NEBIVOLOL
     Indication: Hypertension
     Dosage: 5 MG, 1X/DAY
     Route: 048
     Dates: start: 2011, end: 20211022
  43. POTASSIUM CHLORIDE [Concomitant]
     Active Substance: POTASSIUM CHLORIDE
     Indication: Hypokalaemia
     Dosage: FREQ:12 H;
     Route: 048
     Dates: start: 20210827, end: 20210902
  44. POTASSIUM CHLORIDE [Concomitant]
     Active Substance: POTASSIUM CHLORIDE
     Dosage: 371 MG, 1X/DAY
     Route: 048
     Dates: start: 20210903, end: 20211015
  45. POTASSIUM CHLORIDE [Concomitant]
     Active Substance: POTASSIUM CHLORIDE
     Dosage: 1 DF, 1X/DAY
     Route: 048
     Dates: start: 20211109, end: 20211109
  46. POTASSIUM CHLORIDE [Concomitant]
     Active Substance: POTASSIUM CHLORIDE
     Dosage: FREQ:12 H;
     Route: 048
     Dates: start: 20211110, end: 20211111
  47. POTASSIUM CHLORIDE [Concomitant]
     Active Substance: POTASSIUM CHLORIDE
     Dosage: 1 DF, 1X/DAY
     Route: 048
     Dates: start: 20211109, end: 20211109
  48. POTASSIUM CHLORIDE [Concomitant]
     Active Substance: POTASSIUM CHLORIDE
     Dosage: FREQ:12 H;
     Route: 048
     Dates: start: 20211110, end: 20211111
  49. POTASSIUM CHLORIDE [Concomitant]
     Active Substance: POTASSIUM CHLORIDE
     Dosage: 1 DF, SINGLE
     Route: 048
     Dates: start: 20211112, end: 20211112
  50. POTASSIUM CHLORIDE [Concomitant]
     Active Substance: POTASSIUM CHLORIDE
     Dosage: 1 DF, SINGLE
     Route: 048
     Dates: start: 20211112, end: 20211112
  51. ACETAMINOPHEN [Concomitant]
     Active Substance: ACETAMINOPHEN
     Indication: Pain
     Dosage: 500 MG, AS NEEDED
     Route: 048
     Dates: start: 202105
  52. ACETAMINOPHEN [Concomitant]
     Active Substance: ACETAMINOPHEN
     Indication: Pain
     Dosage: 1000 MG, SINGLE
     Route: 048
     Dates: start: 20211111, end: 20211111
  53. ACETAMINOPHEN [Concomitant]
     Active Substance: ACETAMINOPHEN
     Dosage: 1000 MG, SINGLE
     Route: 048
     Dates: start: 20211111, end: 20211111
  54. ONDANSETRON [Concomitant]
     Active Substance: ONDANSETRON
     Indication: Premedication
     Dosage: 8 MG, EVERY 3 WEEKS
     Route: 042
     Dates: start: 20210716, end: 20211118
  55. ONDANSETRON [Concomitant]
     Active Substance: ONDANSETRON
     Indication: Vomiting
     Dosage: FREQ:12 H;
     Route: 042
     Dates: start: 20211111, end: 20211111
  56. ASPARTIC ACID/MAGNESIUM CARBONATE/POTASSIUM CHLORIDE [Concomitant]
     Route: 048
     Dates: start: 2017, end: 20211118
  57. ASPARTIC ACID/MAGNESIUM CARBONATE/POTASSIUM CHLORIDE [Concomitant]
     Dosage: 1 DF, 1X/DAY
     Route: 048
     Dates: start: 20211204
  58. ENOXAPARIN SODIUM [Concomitant]
     Active Substance: ENOXAPARIN SODIUM
     Indication: Thrombosis prophylaxis
     Dosage: 40 MG, 1X/DAY
     Route: 058
     Dates: start: 20210723, end: 20210915
  59. ENOXAPARIN SODIUM [Concomitant]
     Active Substance: ENOXAPARIN SODIUM
     Dosage: 40 MG, 1X/DAY
     Route: 058
     Dates: start: 20210925
  60. VITAMIN D3 [Concomitant]
     Active Substance: CHOLECALCIFEROL
     Indication: Vitamin supplementation
     Dosage: UNK
     Route: 048
     Dates: start: 2018, end: 20210923
  61. VITAMIN D3 [Concomitant]
     Active Substance: CHOLECALCIFEROL
     Dosage: UNK
     Route: 048
     Dates: start: 20210924
  62. INDAPAMIDE [Concomitant]
     Active Substance: INDAPAMIDE
     Indication: Hypertension
     Dosage: 5 MG, AS NEEDED
     Route: 048
     Dates: start: 202104, end: 20210915
  63. MARUS ALBA [Concomitant]
     Indication: Nutritional supplementation
     Dosage: 1 DF, 1X/DAY
     Route: 048
     Dates: start: 2018, end: 20211118

REACTIONS (2)
  - Ischaemic stroke [Recovered/Resolved with Sequelae]
  - Off label use [Unknown]

NARRATIVE: CASE EVENT DATE: 20210716
